FAERS Safety Report 21260201 (Version 1)
Quarter: 2022Q3

REPORT INFORMATION
  Report Type: Spontaneous
  Country: US (occurrence: US)
  Receive Date: 20220826
  Receipt Date: 20220826
  Transmission Date: 20221026
  Serious: Yes (Other)
  Sender: FDA-Public Use
  Company Number: US-TEVA-2022-US-2068547

PATIENT
  Age: 7 Decade

DRUGS (6)
  1. CLOBETASOL [Suspect]
     Active Substance: CLOBETASOL
     Indication: Palmar-plantar erythrodysaesthesia syndrome
     Route: 065
  2. ACITRETIN [Suspect]
     Active Substance: ACITRETIN
     Indication: Palmar-plantar erythrodysaesthesia syndrome
     Dosage: 10 MILLIGRAM DAILY;
     Route: 065
  3. ACITRETIN [Suspect]
     Active Substance: ACITRETIN
     Indication: Palmar-plantar erythrodysaesthesia syndrome
     Dosage: MAXIMUM DOSE; DAILY
     Route: 065
  4. REGORAFENIB [Suspect]
     Active Substance: REGORAFENIB
     Indication: Gastrointestinal stromal tumour
     Dosage: 120 MG DAILY FOR 3 WEEK ON, ALTERNATING WITH 1 WEEK OFF
     Route: 065
  5. UREA [Suspect]
     Active Substance: UREA
     Indication: Palmar-plantar erythrodysaesthesia syndrome
     Route: 065
  6. VINEGAR [Suspect]
     Active Substance: ACETIC ACID
     Indication: Palmar-plantar erythrodysaesthesia syndrome
     Dosage: DILUTED VINEGAR SOAKS
     Route: 065

REACTIONS (3)
  - Palmar-plantar erythrodysaesthesia syndrome [Recovering/Resolving]
  - Drug ineffective [Unknown]
  - Off label use [Unknown]
